FAERS Safety Report 8962313 (Version 1)
Quarter: 2012Q4

REPORT INFORMATION
  Report Type: Spontaneous
  Country: US (occurrence: None)
  Receive Date: 20121203
  Receipt Date: 20121203
  Transmission Date: 20130627
  Serious: Yes (Disabling)
  Sender: FDA-Public Use
  Company Number: 1508112

PATIENT
  Age: 90 Year
  Sex: Male

DRUGS (2)
  1. AMIODARONE [Suspect]
     Indication: ARRHYTHMIA
  2. DIGOXIN [Concomitant]

REACTIONS (11)
  - Myoclonus [None]
  - Gait disturbance [None]
  - Hypoacusis [None]
  - Decreased vibratory sense [None]
  - Hyperreflexia [None]
  - Tremor [None]
  - Dysstasia [None]
  - Cerebellar infarction [None]
  - White matter lesion [None]
  - Cerebral atrophy [None]
  - Fatigue [None]
